FAERS Safety Report 5390962-0 (Version None)
Quarter: 2007Q3

REPORT INFORMATION
  Report Type: 
  Country: None (occurrence: None)
  Receive Date: 20070716
  Receipt Date: 20070430
  Transmission Date: 20080115
  Serious: Yes (Other)
  Sender: FDA-Public Use
  Company Number: MPS1-10685

PATIENT

DRUGS (1)
  1. ALDURAZYME [Suspect]
     Indication: MUCOPOLYSACCHARIDOSIS IH
     Dosage: 0.58 MG/MG QWK IV
     Route: 042
     Dates: start: 20070210

REACTIONS (3)
  - CENTRAL LINE INFECTION [None]
  - LUNG NEOPLASM [None]
  - STAPHYLOCOCCAL SEPSIS [None]
